FAERS Safety Report 7458519-5 (Version None)
Quarter: 2011Q2

REPORT INFORMATION
  Report Type: 
  Country: None (occurrence: None)
  Receive Date: 20110503
  Receipt Date: 20110503
  Transmission Date: 20111010
  Serious: No
  Sender: FDA-Public Use
  Company Number: None

PATIENT
  Sex: Female
  Weight: 96.5 kg

DRUGS (3)
  1. GM-CSF (SARGRAMOSTIM, LEUKINE) [Suspect]
     Dosage: 900 MCG
     Dates: end: 20110407
  2. CARBOPLATIN [Suspect]
     Dosage: 900 MG
     Dates: end: 20110404
  3. PACLITAXEL [Suspect]
     Dosage: 336 MG
     Dates: end: 20110411

REACTIONS (1)
  - THROMBOCYTOPENIA [None]
